FAERS Safety Report 19372247 (Version 1)
Quarter: 2021Q2

REPORT INFORMATION
  Report Type: Spontaneous
  Country: US (occurrence: US)
  Receive Date: 20210604
  Receipt Date: 20210604
  Transmission Date: 20210717
  Serious: No
  Sender: FDA-Public Use
  Company Number: US-SA-2021SA183741

PATIENT
  Age: 67 Year
  Sex: Female
  Weight: 65.8 kg

DRUGS (1)
  1. DUPIXENT [Suspect]
     Active Substance: DUPILUMAB
     Indication: DERMATITIS ATOPIC
     Route: 058
     Dates: start: 202012

REACTIONS (6)
  - Dermatitis atopic [Recovered/Resolved]
  - Erythema [Unknown]
  - Conjunctivitis [Recovered/Resolved]
  - Erythema of eyelid [Unknown]
  - Eyelids pruritus [Unknown]
  - Ear pruritus [Unknown]

NARRATIVE: CASE EVENT DATE: 20210521
